FAERS Safety Report 10254123 (Version 3)
Quarter: 2014Q3

REPORT INFORMATION
  Report Type: Spontaneous
  Country: US (occurrence: US)
  Receive Date: 20140623
  Receipt Date: 20140710
  Transmission Date: 20150326
  Serious: Yes (Hospitalization, Other)
  Sender: FDA-Public Use
  Company Number: PHEH2014US012237

PATIENT
  Sex: Female

DRUGS (14)
  1. SYMBICORT [Concomitant]
     Active Substance: BUDESONIDE\FORMOTEROL FUMARATE DIHYDRATE
     Dosage: 1 DF, BID
     Route: 055
  2. ASPIRIN. [Concomitant]
     Active Substance: ASPIRIN
     Dosage: 325 MG, A DAY
     Route: 048
  3. PRINIVIL [Concomitant]
     Active Substance: LISINOPRIL
     Dosage: UNK UKN, UNK
  4. PROAIR HFA [Concomitant]
     Active Substance: ALBUTEROL SULFATE
     Dosage: 108.9 BASE, PRN
     Route: 055
  5. ALBUTEROL SULFATE. [Concomitant]
     Active Substance: ALBUTEROL SULFATE
     Dosage: 2.5 MG, PRN
     Route: 055
  6. XANAX - SLOW RELEASE [Concomitant]
     Dosage: UNK UKN, UNK
  7. MONTELUKAST SODIUM. [Concomitant]
     Active Substance: MONTELUKAST SODIUM
     Dosage: 10 MG, A DAY
  8. SIMVASTATIN. [Concomitant]
     Active Substance: SIMVASTATIN
     Dosage: 20 MG, A DAY
  9. DULOXETINE [Concomitant]
     Active Substance: DULOXETINE
     Dosage: UNK UKN, UNK
  10. LISINOPRIL. [Concomitant]
     Active Substance: LISINOPRIL
     Dosage: 40 MG, A DAY
     Route: 048
  11. HYDROCHLOROTH [Concomitant]
     Active Substance: HYDROCHLOROTHIAZIDE
  12. TEKTURNA [Suspect]
     Active Substance: ALISKIREN HEMIFUMARATE
     Dosage: 300 MG, A DAY
     Route: 048
  13. NITROFURANTOIN. [Concomitant]
     Active Substance: NITROFURANTOIN
     Dosage: 100 MG, A DAY
     Route: 048
  14. HYDROCHLOROTHIAZIDE. [Concomitant]
     Active Substance: HYDROCHLOROTHIAZIDE
     Dosage: UNK UKN, UNK

REACTIONS (6)
  - Oedema peripheral [Unknown]
  - Neuralgia [Unknown]
  - Facial pain [Unknown]
  - Blood pressure increased [Unknown]
  - Gingival pain [Unknown]
  - Asthma [Unknown]
